FAERS Safety Report 8235141-4 (Version None)
Quarter: 2012Q1

REPORT INFORMATION
  Report Type: 
  Country: None (occurrence: None)
  Receive Date: 20120326
  Receipt Date: 20120320
  Transmission Date: 20120608
  Serious: Yes (Disabling)
  Sender: FDA-Public Use
  Company Number: US-MERCK-1203USA02375

PATIENT
  Age: 35 Year
  Sex: Male

DRUGS (2)
  1. PROPECIA [Suspect]
     Route: 048
     Dates: start: 19990101, end: 20091201
  2. PROPECIA [Suspect]
     Indication: ANDROGENETIC ALOPECIA
     Route: 048
     Dates: start: 19990101, end: 20091201

REACTIONS (15)
  - COGNITIVE DISORDER [None]
  - ERECTILE DYSFUNCTION [None]
  - SEXUAL DYSFUNCTION [None]
  - PROSTATIC PAIN [None]
  - LIBIDO DECREASED [None]
  - ANXIETY [None]
  - LOSS OF LIBIDO [None]
  - PENIS DISORDER [None]
  - GENITAL HYPOAESTHESIA [None]
  - DEPRESSION [None]
  - TESTICULAR PAIN [None]
  - EMOTIONAL DISTRESS [None]
  - SEMEN VOLUME DECREASED [None]
  - DYSARTHRIA [None]
  - GYNAECOMASTIA [None]
